FAERS Safety Report 20137132 (Version 6)
Quarter: 2022Q1

REPORT INFORMATION
  Report Type: Report from Study
  Country: JP (occurrence: None)
  Receive Date: 20211201
  Receipt Date: 20220117
  Transmission Date: 20220423
  Serious: Yes (Hospitalization)
  Sender: FDA-Public Use
  Company Number: 2021A846200

PATIENT
  Age: 66 Year
  Sex: Male

DRUGS (34)
  1. DURVALUMAB [Suspect]
     Active Substance: DURVALUMAB
     Indication: Oesophageal squamous cell carcinoma
     Dosage: 1500.0 MG
     Route: 042
     Dates: start: 20211006, end: 20211006
  2. DURVALUMAB [Suspect]
     Active Substance: DURVALUMAB
     Indication: Oesophageal squamous cell carcinoma
     Dosage: 1500.0 MG
     Route: 042
     Dates: start: 20211105, end: 20211105
  3. CISPLATIN [Suspect]
     Active Substance: CISPLATIN
     Indication: Oesophageal squamous cell carcinoma
     Dosage: 75.0 MG/M2
     Route: 065
     Dates: start: 20211006, end: 20211006
  4. CISPLATIN [Suspect]
     Active Substance: CISPLATIN
     Indication: Oesophageal squamous cell carcinoma
     Dosage: 75.0 MG/M2
     Route: 065
     Dates: start: 20211109
  5. FLUOROURACIL [Suspect]
     Active Substance: FLUOROURACIL
     Indication: Oesophageal squamous cell carcinoma
     Dosage: 750.0 MG/M2
     Route: 065
     Dates: start: 20211006, end: 20211010
  6. FLUOROURACIL [Suspect]
     Active Substance: FLUOROURACIL
     Indication: Oesophageal squamous cell carcinoma
     Dosage: 750.0 MG/M2
     Route: 065
     Dates: start: 20211109, end: 20211113
  7. TRAVOPROST [Concomitant]
     Active Substance: TRAVOPROST
     Indication: Glaucoma
     Dosage: 2.0 DF DAILY
     Route: 047
     Dates: start: 20201023
  8. ROSUVASTATIN TABLETS 5MG^TOWA^ [Concomitant]
     Indication: Hypertension
     Dosage: 5.0 MG DAILY
     Route: 048
     Dates: start: 20200820
  9. ILUAMIX COMBINATION TABLETS LD^TOWA^ [Concomitant]
     Indication: Hypertension
     Dosage: 1.0 DF DAILY
     Route: 048
     Dates: start: 20200820
  10. AMLODIPINE OD TABLETS 5MG^TOWA^ [Concomitant]
     Indication: Hypertension
     Dosage: 5.0 MG DAILY
     Route: 048
     Dates: start: 20201002
  11. LANSOPRAZOLE [Concomitant]
     Active Substance: LANSOPRAZOLE
     Indication: Prophylaxis against gastrointestinal ulcer
     Dosage: 30.0 MG DAILY
     Route: 048
     Dates: start: 20210929
  12. SODIUM CHLORIDE [Concomitant]
     Active Substance: SODIUM CHLORIDE
     Indication: Nutritional supplementation
     Dosage: 1.0 G AS NEEDED
     Dates: start: 20210930
  13. RACOL-NF LIQUID FOR ENTERAL USE [Concomitant]
     Indication: Nutritional supplementation
     Dosage: 400.0 ML AS NEEDED
     Dates: start: 20210930
  14. SODIUM GUALENATE MONOHYDRATE [Concomitant]
     Active Substance: SODIUM GUALENATE MONOHYDRATE
     Dosage: 4.0 MG AS NEEDED
     Route: 002
     Dates: start: 20211006
  15. POTASSIUM L-ASPARATE [Concomitant]
     Indication: Premedication
     Dosage: 10.0 ML AT THE TIME OF ADMINISTRATION OF ANTICANCER DRUG
     Route: 042
     Dates: start: 20211006
  16. LEUCINE/HISTIDINE HYDROCHLORIDE/NICOTINAMIDE/FERROUS SULFATE/COPPER SU [Concomitant]
     Indication: Premedication
     Dosage: 8.0 ML AT THE TIME OF ADMINISTRATION OF ANTICANCER DRUG
     Route: 042
     Dates: start: 20211006
  17. FOSAPREPITANT [Concomitant]
     Active Substance: FOSAPREPITANT
     Indication: Premedication
     Dosage: 150.0 MG AT THE TIME OF ADMINISTRATION OF ANTICANCER DRUG
     Route: 042
     Dates: start: 20211006
  18. PALONOSETRON HYDROCHLORIDE [Concomitant]
     Active Substance: PALONOSETRON HYDROCHLORIDE
     Indication: Premedication
     Dosage: 50.0 ML AT THE TIME OF ADMINISTRATION OF ANTICANCER DRUG
     Route: 042
     Dates: start: 20211006
  19. BENZALKONIUM CHLORIDE/DEXAMETHASONE SODIUM PHOSPHATE [Concomitant]
     Indication: Premedication
     Dosage: 9.9 MG AT THE TIME OF ADMINISTRATION OF ANTICANCER DRUG
     Route: 042
     Dates: start: 20211006
  20. BENZALKONIUM CHLORIDE/DEXAMETHASONE SODIUM PHOSPHATE [Concomitant]
     Indication: Premedication
     Dosage: 6.6 MG DAYS 2-4 OF FLUOROURACIL ADMINISTRATION
     Route: 042
     Dates: start: 20211007
  21. FUROSEMIDE [Concomitant]
     Active Substance: FUROSEMIDE
     Indication: Premedication
     Dosage: 20.0 MG AT THE TIME OF ADMINISTRATION OF ANTICANCER DRUG
     Route: 042
     Dates: start: 20211006
  22. FUROSEMIDE [Concomitant]
     Active Substance: FUROSEMIDE
     Indication: Atrial fibrillation
     Dosage: 20.0 MG AT THE TIME OF ADMINISTRATION OF ANTICANCER DRUG
     Route: 042
     Dates: start: 20211006
  23. CALONAL TABLETS [Concomitant]
     Indication: Oesophagitis
     Dosage: 600.0 MG 3 TIMES PER DAY
     Route: 048
     Dates: start: 20211020
  24. MORPHINE SULFATE [Concomitant]
     Active Substance: MORPHINE SULFATE
     Indication: Oesophagitis
     Dosage: 40.0 MG EVERY 12 HOUR
     Route: 048
     Dates: start: 20211013
  25. SYMPROIC TABLETS [Concomitant]
     Indication: Constipation
     Dosage: 0.2 MG DAILY
     Route: 048
     Dates: start: 20211013
  26. MORPHINE HYDROCHLORIDE [Concomitant]
     Active Substance: MORPHINE HYDROCHLORIDE
     Indication: Oesophagitis
     Dosage: 15.0 MG 3 TIMES PER DAY
     Route: 048
     Dates: start: 20211013
  27. SUNRYTHM CAPSULES [Concomitant]
     Indication: Atrial fibrillation
     Dosage: 75.0 MG 3 TIMES PER DAY
     Route: 048
     Dates: start: 20211011
  28. VASOLAN [Concomitant]
     Indication: Atrial fibrillation
     Dosage: 120.0 MG 3 TIMES PER DAY
     Route: 048
     Dates: start: 20211011
  29. PETROLATUM [Concomitant]
     Active Substance: PETROLATUM
     Indication: Gastrostomy
     Dosage: 1.0 FTU AS NEEDED
     Route: 061
     Dates: start: 20211011
  30. BETAMETHASONE BUTYRATE PROPIONATE [Concomitant]
     Active Substance: BETAMETHASONE BUTYRATE PROPIONATE
     Indication: Rash
     Dosage: 1.0 FTU TWICE PER DAY
     Route: 061
     Dates: start: 20211105
  31. TARLIGE TABLETS [Concomitant]
     Indication: Oesophagitis
     Dosage: 10.0 MG TWICE PER DAY
     Route: 048
     Dates: start: 20211109
  32. GLACTIVE TABLETS [Concomitant]
     Indication: Diabetes mellitus
     Dosage: 50.0 MG DAILY
     Route: 048
     Dates: start: 20211113
  33. FILGRASTIM BS INJECTION SYRINGE F [Concomitant]
     Indication: Neutropenia
     Dosage: 75.0 UG DAILY
     Route: 042
     Dates: start: 20211121, end: 20211126
  34. HYDROXYZINE HYDROCHLORIDE [Concomitant]
     Active Substance: HYDROXYZINE HYDROCHLORIDE
     Indication: Insomnia
     Dosage: 25.0 MG DAILY
     Route: 042
     Dates: start: 20211121, end: 20211121

REACTIONS (3)
  - Oesophageal fistula [Recovered/Resolved with Sequelae]
  - Neutrophil count decreased [Recovered/Resolved]
  - Platelet count decreased [Recovered/Resolved]

NARRATIVE: CASE EVENT DATE: 20211118
